FAERS Safety Report 5673445-X (Version None)
Quarter: 2008Q2

REPORT INFORMATION
  Report Type: 
  Country: None (occurrence: None)
  Receive Date: 20080219
  Receipt Date: 20071022
  Transmission Date: 20081010
  Serious: No
  Sender: FDA-Public Use
  Company Number: TPA2007A02160

PATIENT
  Age: 52 Year
  Sex: Female
  Weight: 63.5036 kg

DRUGS (4)
  1. ROZEREM [Suspect]
     Indication: SLEEP DISORDER
     Dosage: 8 MG, QHS, PER ORAL
     Route: 048
     Dates: start: 20071018
  2. VITAMIN SUPPLEMENT (VITAMINS) (TABLETS) [Concomitant]
  3. FISH OIL (FISH OIL) (TABLETS) [Concomitant]
  4. CALCIUM (CALCIUM) [Concomitant]

REACTIONS (1)
  - MIDDLE INSOMNIA [None]
